FAERS Safety Report 4666120-1 (Version None)
Quarter: 2005Q2

REPORT INFORMATION
  Report Type: 
  Country: None (occurrence: None)
  Receive Date: 20050519
  Receipt Date: 20050506
  Transmission Date: 20051028
  Serious: Yes (Other)
  Sender: FDA-Public Use
  Company Number: JP-JNJFOC-20050501900

PATIENT
  Age: 56 Year
  Sex: Female

DRUGS (1)
  1. TARAVID [Suspect]
     Route: 049
     Dates: start: 20050201, end: 20050201

REACTIONS (1)
  - ANOSMIA [None]
